FAERS Safety Report 21770418 (Version 1)
Quarter: 2022Q4

REPORT INFORMATION
  Report Type: Other
  Country: CA (occurrence: CA)
  Receive Date: 20221223
  Receipt Date: 20221223
  Transmission Date: 20230113
  Serious: Yes (Hospitalization)
  Sender: FDA-Public Use
  Company Number: CA-APOTEX-2022AP017062

PATIENT
  Age: 30 Year
  Sex: Male

DRUGS (1)
  1. VALPROIC ACID [Suspect]
     Active Substance: VALPROIC ACID
     Indication: Product used for unknown indication
     Dosage: UNK
     Route: 065

REACTIONS (4)
  - Blood alkaline phosphatase increased [Unknown]
  - Gamma-glutamyltransferase increased [Unknown]
  - Liver function test abnormal [Unknown]
  - Alanine aminotransferase increased [Unknown]
